FAERS Safety Report 6553773-6 (Version None)
Quarter: 2010Q1

REPORT INFORMATION
  Report Type: 
  Country: None (occurrence: None)
  Receive Date: 20100127
  Receipt Date: 20100122
  Transmission Date: 20100710
  Serious: Yes (Death, Hospitalization)
  Sender: FDA-Public Use
  Company Number: FR-BRISTOL-MYERS SQUIBB COMPANY-14868509

PATIENT
  Age: 58 Year
  Sex: Female

DRUGS (4)
  1. CETUXIMAB [Suspect]
     Indication: PHARYNGEAL CANCER STAGE UNSPECIFIED
     Dosage: RECENT INF:03NOV09
     Route: 042
     Dates: start: 20091027, end: 20091103
  2. CISPLATIN FOR INJ [Suspect]
     Indication: PHARYNGEAL CANCER STAGE UNSPECIFIED
     Dosage: RECENT INF:27OCT09
     Route: 042
     Dates: start: 20091027, end: 20091027
  3. DOCETAXEL [Suspect]
     Indication: PHARYNGEAL CANCER STAGE UNSPECIFIED
     Dosage: RECENT INF:27OCT09
     Route: 042
     Dates: start: 20091027, end: 20091027
  4. FLUOROURACIL [Suspect]
     Indication: PHARYNGEAL CANCER STAGE UNSPECIFIED
     Dosage: RECENT INF:31OCT09
     Route: 042
     Dates: start: 20091027, end: 20091031

REACTIONS (5)
  - EPIDERMOLYSIS [None]
  - HAEMOPTYSIS [None]
  - LARGE INTESTINE PERFORATION [None]
  - PNEUMOPERITONEUM [None]
  - SUBCUTANEOUS EMPHYSEMA [None]
